FAERS Safety Report 25752980 (Version 1)
Quarter: 2025Q3

REPORT INFORMATION
  Report Type: Spontaneous
  Country: JP (occurrence: JP)
  Receive Date: 20250902
  Receipt Date: 20250902
  Transmission Date: 20251021
  Serious: Yes (Hospitalization, Other)
  Sender: BRISTOL-MYERS SQUIBB COMPANY
  Company Number: JP-BRISTOL-MYERS SQUIBB COMPANY-2025-119671

PATIENT
  Age: 7 Decade
  Sex: Female

DRUGS (2)
  1. YERVOY [Suspect]
     Active Substance: IPILIMUMAB
     Indication: Malignant melanoma
     Route: 041
  2. OPDIVO [Suspect]
     Active Substance: NIVOLUMAB
     Indication: Malignant melanoma

REACTIONS (11)
  - Immune-mediated dermatitis [Unknown]
  - Liver disorder [Unknown]
  - Hypoxia [Unknown]
  - Cardiomegaly [Unknown]
  - Pericardial effusion [Unknown]
  - Pleural effusion [Unknown]
  - Pulmonary congestion [Unknown]
  - Hepatomegaly [Unknown]
  - Splenomegaly [Unknown]
  - Congestive hepatopathy [Unknown]
  - Cytokine release syndrome [Unknown]
